FAERS Safety Report 7647693-3 (Version None)
Quarter: 2011Q3

REPORT INFORMATION
  Report Type: 
  Country: None (occurrence: None)
  Receive Date: 20110801
  Receipt Date: 20110801
  Transmission Date: 20111222
  Serious: Yes (Hospitalization)
  Sender: FDA-Public Use
  Company Number: None

PATIENT
  Age: 80 Year
  Sex: Female
  Weight: 56.245 kg

DRUGS (1)
  1. LENALIDOMIDE [Suspect]
     Indication: B-CELL LYMPHOMA
     Dosage: 10 MG
     Route: 048
     Dates: start: 20110405, end: 20110727

REACTIONS (4)
  - CONSTIPATION [None]
  - DIARRHOEA [None]
  - ABDOMINAL PAIN [None]
  - DIVERTICULITIS [None]
